FAERS Safety Report 8494280-3 (Version None)
Quarter: 2012Q2

REPORT INFORMATION
  Report Type: 
  Country: None (occurrence: None)
  Receive Date: 20120627
  Receipt Date: 20120615
  Transmission Date: 20120825
  Serious: Yes (Death, Hospitalization)
  Sender: FDA-Public Use
  Company Number: 2012SP025242

PATIENT
  Age: 51 Year
  Sex: Male

DRUGS (4)
  1. DEXAMETHASONE [Concomitant]
  2. ACETAMINOPHEN [Concomitant]
  3. PANTOPRAZOLE [Concomitant]
  4. TEMOZOLOMIDE [Suspect]
     Indication: GLIOBLASTOMA MULTIFORME
     Dosage: 7 5 MG/M2;QD;PO
     Route: 048
     Dates: start: 20080801, end: 20080901

REACTIONS (5)
  - VISUAL IMPAIRMENT [None]
  - PANCREAS DIVISUM [None]
  - LIVER INJURY [None]
  - JAUNDICE [None]
  - HEPATITIS CHOLESTATIC [None]
